FAERS Safety Report 4807803-X (Version None)
Quarter: 2005Q4

REPORT INFORMATION
  Report Type: 
  Country: None (occurrence: None)
  Receive Date: 20051024
  Receipt Date: 20051014
  Transmission Date: 20060501
  Serious: Yes (Hospitalization)
  Sender: FDA-Public Use
  Company Number: US-ABBOTT-05P-163-0313899-00

PATIENT
  Age: 6 Year
  Sex: Male
  Weight: 19.976 kg

DRUGS (6)
  1. OMNICEF [Suspect]
     Indication: EAR CONGESTION
     Route: 048
     Dates: start: 20051008, end: 20051013
  2. ACETAMINOPHEN [Concomitant]
     Indication: PAIN IN EXTREMITY
     Route: 048
     Dates: start: 20051001
  3. MYCOPHENOLATE MOFETIL [Concomitant]
     Indication: RENAL TRANSPLANT
     Route: 048
  4. TAGAMET [Concomitant]
     Indication: DRUG USE FOR UNKNOWN INDICATION
     Route: 048
  5. CETIRIZINE HCL [Concomitant]
     Indication: HYPERSENSITIVITY
     Route: 048
     Dates: end: 20051013
  6. CYCLOSPORINE [Concomitant]
     Indication: RENAL TRANSPLANT
     Route: 048
     Dates: start: 20010101

REACTIONS (5)
  - APHTHOUS STOMATITIS [None]
  - DIFFICULTY IN WALKING [None]
  - DYSSTASIA [None]
  - PAIN IN EXTREMITY [None]
  - RHABDOMYOLYSIS [None]
